FAERS Safety Report 8077616-7 (Version None)
Quarter: 2012Q1

REPORT INFORMATION
  Report Type: 
  Country: None (occurrence: None)
  Receive Date: 20120127
  Receipt Date: 20120124
  Transmission Date: 20120608
  Serious: Yes (Hospitalization, Other)
  Sender: FDA-Public Use
  Company Number: JP-PFIZER INC-2011201477

PATIENT
  Age: 68 Year
  Sex: Male
  Weight: 61.8 kg

DRUGS (12)
  1. PREDNISOLONE [Concomitant]
     Indication: MUSCULOSKELETAL PAIN
     Dosage: 5 MG, 2X/DAY
     Route: 048
     Dates: start: 20110416, end: 20110829
  2. CELECOXIB [Concomitant]
     Indication: PALLIATIVE CARE
     Dosage: 100 MG, 2X/DAY
     Route: 048
     Dates: start: 20110428, end: 20110815
  3. PREDNISOLONE [Concomitant]
     Dosage: UNK
     Route: 048
     Dates: start: 20110902, end: 20110905
  4. MUCOSTA [Concomitant]
     Indication: PROPHYLAXIS
     Dosage: 100 MG, 2X/DAY
     Route: 048
     Dates: start: 20110428, end: 20110815
  5. PREDNISOLONE [Concomitant]
     Dosage: UNK
     Route: 048
     Dates: start: 20110830, end: 20110901
  6. OLOPATADINE HCL [Concomitant]
     Indication: PRURITUS
     Dosage: 1 DF, 2X/DAY
     Route: 048
     Dates: start: 20060101, end: 20110815
  7. PREDNISOLONE [Concomitant]
     Dosage: UNK
     Route: 048
     Dates: start: 20110906
  8. CLARITHROMYCIN [Concomitant]
     Indication: PROPHYLAXIS
     Dosage: 1 DF, 1X/DAY
     Route: 048
     Dates: start: 20060101, end: 20110815
  9. SPIRIVA [Concomitant]
     Indication: PROPHYLAXIS
     Dosage: 2 DF, 1X/DAY
     Dates: start: 20090101, end: 20110815
  10. ENBREL [Suspect]
     Indication: RHEUMATOID ARTHRITIS
     Dosage: 50 MG, WEEKLY
     Route: 058
     Dates: start: 20110623, end: 20110812
  11. VOLTAREN [Concomitant]
     Indication: ANALGESIC THERAPY
     Dosage: 1 DF, 2X/DAY
     Dates: start: 20110623, end: 20110721
  12. ISONIAZID [Concomitant]
     Indication: ANTIBIOTIC PROPHYLAXIS
     Dosage: 2 DF, 1X/DAY
     Route: 048
     Dates: start: 20110623, end: 20110815

REACTIONS (2)
  - INTERSTITIAL LUNG DISEASE [None]
  - STEVENS-JOHNSON SYNDROME [None]
